FAERS Safety Report 15657619 (Version 3)
Quarter: 2019Q1

REPORT INFORMATION
  Report Type: Report from Study
  Country: US (occurrence: US)
  Receive Date: 20181126
  Receipt Date: 20190126
  Transmission Date: 20190417
  Serious: Yes (Other)
  Sender: FDA-Public Use
  Company Number: US-SHIRE-US201845141

PATIENT
  Sex: Male

DRUGS (3)
  1. GATTEX [Suspect]
     Active Substance: TEDUGLUTIDE\WATER
     Dosage: 5 MG, EVERY OTHER DAY
     Route: 058
     Dates: start: 20180406
  2. GATTEX [Suspect]
     Active Substance: TEDUGLUTIDE\WATER
     Dosage: 5 MG, 1X/DAY:QD
     Route: 058
     Dates: start: 20180401
  3. GATTEX [Suspect]
     Active Substance: TEDUGLUTIDE\WATER
     Indication: SHORT-BOWEL SYNDROME
     Dosage: 5 MG, 1X/DAY:QD (DAILY)
     Route: 058
     Dates: start: 20180405

REACTIONS (7)
  - Urinary tract infection [Unknown]
  - Abdominal distension [Unknown]
  - Flatulence [Unknown]
  - Nausea [Unknown]
  - Sinusitis [Unknown]
  - Oedema peripheral [Unknown]
  - Abdominal pain [Unknown]
